FAERS Safety Report 4984771-1 (Version None)
Quarter: 2006Q2

REPORT INFORMATION
  Report Type: 
  Country: None (occurrence: None)
  Receive Date: 20060426
  Receipt Date: 20060426
  Transmission Date: 20061013
  Serious: Yes (Hospitalization)
  Sender: FDA-Public Use
  Company Number: None

PATIENT
  Age: 57 Year
  Sex: Male
  Weight: 101.6057 kg

DRUGS (3)
  1. BUMETANIDE [Suspect]
     Indication: HYPERTENSION
     Dosage: 2 MG TID PO
     Route: 048
     Dates: start: 20030213, end: 20060312
  2. BUMETANIDE [Suspect]
     Indication: OEDEMA
     Dosage: 2 MG TID PO
     Route: 048
     Dates: start: 20030213, end: 20060312
  3. METOPROLOL TARTRATE [Suspect]
     Indication: HYPERTENSION
     Dosage: 50 MG BID PO
     Route: 048

REACTIONS (3)
  - ELECTROLYTE IMBALANCE [None]
  - ORTHOSTATIC HYPOTENSION [None]
  - POLYURIA [None]
